FAERS Safety Report 9974057 (Version 2)
Quarter: 2014Q2

REPORT INFORMATION
  Report Type: Spontaneous
  Country: US (occurrence: US)
  Receive Date: 20140306
  Receipt Date: 20140403
  Transmission Date: 20141212
  Serious: Yes (Other)
  Sender: FDA-Public Use
  Company Number: US-GLAXOSMITHKLINE-A1062339A

PATIENT
  Age: 49 Year
  Sex: Female

DRUGS (1)
  1. LAMICTAL [Suspect]
     Indication: EPILEPSY
     Dosage: 800MG PER DAY
     Route: 048

REACTIONS (5)
  - Seizure like phenomena [Not Recovered/Not Resolved]
  - Convulsion [Not Recovered/Not Resolved]
  - Convulsion [Unknown]
  - Aura [Not Recovered/Not Resolved]
  - Product quality issue [Not Recovered/Not Resolved]
